FAERS Safety Report 15739211 (Version 1)
Quarter: 2018Q4

REPORT INFORMATION
  Report Type: Report from Study
  Country: US (occurrence: US)
  Receive Date: 20181219
  Receipt Date: 20181219
  Transmission Date: 20190205
  Serious: Yes (Hospitalization, Other)
  Sender: FDA-Public Use
  Company Number: PHEH2018US053023

PATIENT
  Age: 40 Year
  Sex: Male

DRUGS (1)
  1. COSENTYX [Suspect]
     Active Substance: SECUKINUMAB
     Indication: PSORIASIS
     Route: 058

REACTIONS (6)
  - Arthritis infective [Not Recovered/Not Resolved]
  - Purulent discharge [Not Recovered/Not Resolved]
  - Erythema [Not Recovered/Not Resolved]
  - Incorrect dose administered [Unknown]
  - Stevens-Johnson syndrome [Not Recovered/Not Resolved]
  - Skin exfoliation [Not Recovered/Not Resolved]
